FAERS Safety Report 9863539 (Version 1)
Quarter: 2014Q1

REPORT INFORMATION
  Report Type: Spontaneous
  Country: RO (occurrence: RO)
  Receive Date: 20140203
  Receipt Date: 20140203
  Transmission Date: 20141002
  Serious: Yes (Hospitalization)
  Sender: FDA-Public Use
  Company Number: RO-BAYER-2014-016756

PATIENT
  Age: 40 Year
  Sex: Male

DRUGS (1)
  1. BETAFERON [Suspect]
     Indication: MULTIPLE SCLEROSIS RELAPSE
     Dosage: DAILY DOSE 250 MG
     Route: 058
     Dates: start: 20110728

REACTIONS (1)
  - Hypoaesthesia [Recovered/Resolved]
